FAERS Safety Report 6081272-7 (Version None)
Quarter: 2009Q1

REPORT INFORMATION
  Report Type: 
  Country: None (occurrence: None)
  Receive Date: 20090213
  Receipt Date: 20090130
  Transmission Date: 20090719
  Serious: Yes (Congenital Anomaly)
  Sender: FDA-Public Use
  Company Number: 8031099

PATIENT
  Sex: Male

DRUGS (1)
  1. KEPPRA [Suspect]
     Indication: LOSS OF CONSCIOUSNESS
     Dosage: 2000 MG /D TRP
     Route: 064

REACTIONS (5)
  - BLINDNESS [None]
  - CONVULSION [None]
  - DEVELOPMENTAL DELAY [None]
  - JAUNDICE NEONATAL [None]
  - MATERNAL DRUGS AFFECTING FOETUS [None]
